FAERS Safety Report 10214156 (Version 1)
Quarter: 2014Q2

REPORT INFORMATION
  Report Type: Spontaneous
  Country: IT (occurrence: None)
  Receive Date: 20140530
  Receipt Date: 20140530
  Transmission Date: 20141212
  Serious: Yes (Other)
  Sender: FDA-Public Use
  Company Number: 2014P1004434

PATIENT
  Age: 74 Year
  Sex: Female

DRUGS (5)
  1. HYDROCHLOROTHIAZIDE [Suspect]
     Indication: HYPERTENSION
  2. LITHIUM [Suspect]
     Indication: BIPOLAR DISORDER
  3. VALSARTAN [Suspect]
     Indication: HYPERTENSION
  4. CLOMIPRAMIINE [Concomitant]
  5. GLIMEPERIDE (GLIMEPERIDE) [Concomitant]

REACTIONS (9)
  - Parkinsonism [None]
  - Hypothyroidism [None]
  - Drug interaction [None]
  - Bradycardia [None]
  - Lethargy [None]
  - Glomerular filtration rate decreased [None]
  - Dehydration [None]
  - Toxicity to various agents [None]
  - Renal impairment [None]
